FAERS Safety Report 5268051-5 (Version None)
Quarter: 2007Q1

REPORT INFORMATION
  Report Type: 
  Country: None (occurrence: None)
  Receive Date: 20070316
  Receipt Date: 20070316
  Transmission Date: 20070707
  Serious: Yes (Hospitalization)
  Sender: FDA-Public Use
  Company Number: None

PATIENT
  Sex: Male
  Weight: 57.5 kg

DRUGS (4)
  1. ISONIAZID [Suspect]
     Indication: PULMONARY TUBERCULOSIS
     Dosage: 300 MG DAILY PO
     Route: 048
     Dates: start: 20060716, end: 20060730
  2. RIFAMPIN [Suspect]
     Indication: PULMONARY TUBERCULOSIS
     Dosage: 600 MG DAILY PO
     Route: 048
     Dates: start: 20060716, end: 20060801
  3. PYRAZINAMIDE [Concomitant]
  4. ETHAMBUTOL HYDROCHLORIDE [Concomitant]

REACTIONS (1)
  - HEPATITIS [None]
